FAERS Safety Report 5262225-5 (Version None)
Quarter: 2007Q1

REPORT INFORMATION
  Report Type: 
  Country: None (occurrence: None)
  Receive Date: 20070308
  Receipt Date: 20070308
  Transmission Date: 20070707
  Serious: Yes (Life-Threatening)
  Sender: FDA-Public Use
  Company Number: None

PATIENT
  Sex: Male
  Weight: 86.1834 kg

DRUGS (1)
  1. CARDIZEM [Suspect]
     Indication: HYPERTENSION
     Dosage: 300 MG  DAILY  PO
     Route: 048
     Dates: start: 20070221, end: 20070306

REACTIONS (5)
  - DRUG DISPENSING ERROR [None]
  - HEADACHE [None]
  - HYPERTENSION [None]
  - INCORRECT DOSE ADMINISTERED [None]
  - MEDICATION ERROR [None]
